FAERS Safety Report 7612762-0 (Version None)
Quarter: 2011Q3

REPORT INFORMATION
  Report Type: 
  Country: None (occurrence: None)
  Receive Date: 20110708
  Receipt Date: 20110630
  Transmission Date: 20111222
  Serious: Yes (Other)
  Sender: FDA-Public Use
  Company Number: 2011SP025948

PATIENT
  Age: 46 Year
  Sex: Male
  Weight: 79.6 kg

DRUGS (4)
  1. TEMOZOLOMIDE [Suspect]
     Indication: GLIOMA
     Dosage: 160 MG; 430 MG;
     Dates: start: 20110311
  2. TEMOZOLOMIDE [Suspect]
     Indication: GLIOMA
     Dosage: 160 MG; 430 MG;
     Dates: start: 20101223, end: 20110209
  3. LEVETIRACETAM [Concomitant]
  4. GRANISETRON [Concomitant]

REACTIONS (2)
  - COLD AGGLUTININS [None]
  - THROMBOCYTOPENIA [None]
